FAERS Safety Report 9186952 (Version 1)
Quarter: 2013Q1

REPORT INFORMATION
  Report Type: Spontaneous
  Country: US (occurrence: US)
  Receive Date: 20130325
  Receipt Date: 20130325
  Transmission Date: 20140127
  Serious: Yes (Other)
  Sender: FDA-Public Use
  Company Number: US-ABBOTT-13P-163-1066131-00

PATIENT
  Sex: Male

DRUGS (1)
  1. VICODIN [Suspect]
     Indication: PAIN

REACTIONS (3)
  - Renal cancer [Not Recovered/Not Resolved]
  - Pain [Unknown]
  - Drug withdrawal syndrome [Unknown]
